FAERS Safety Report 4610281-7 (Version None)
Quarter: 2005Q1

REPORT INFORMATION
  Report Type: 
  Country: None (occurrence: None)
  Receive Date: 20050314
  Receipt Date: 20050302
  Transmission Date: 20050727
  Serious: Yes (Other)
  Sender: FDA-Public Use
  Company Number: 2005039373

PATIENT
  Age: 18 Year
  Weight: 45.3597 kg

DRUGS (1)
  1. DEPO-PROVERA [Suspect]
     Indication: ILL-DEFINED DISORDER
     Dosage: 150 MG (150 MG, 1 ST INJECTION, EVERY 3 MONTHS), INTRAMUSCULAR
     Route: 030
     Dates: start: 20050127, end: 20050127

REACTIONS (4)
  - ABNORMAL BEHAVIOUR [None]
  - HAEMORRHAGE [None]
  - MOOD SWINGS [None]
  - SUICIDAL IDEATION [None]
